FAERS Safety Report 15888219 (Version 2)
Quarter: 2019Q1

REPORT INFORMATION
  Report Type: Report from Study
  Country: US (occurrence: US)
  Receive Date: 20190130
  Receipt Date: 20190207
  Transmission Date: 20190417
  Serious: Yes (Death)
  Sender: FDA-Public Use
  Company Number: US-TAKEDA-2019TUS002610

PATIENT
  Age: 53 Year
  Sex: Male
  Weight: 55.33 kg

DRUGS (1)
  1. BORTEZOMIB. [Suspect]
     Active Substance: BORTEZOMIB
     Indication: PLASMA CELL MYELOMA
     Dosage: UNK
     Route: 042
     Dates: start: 20181120, end: 20190104

REACTIONS (1)
  - Death [Fatal]

NARRATIVE: CASE EVENT DATE: 20190110
